FAERS Safety Report 11916741 (Version 1)
Quarter: 2016Q1

REPORT INFORMATION
  Report Type: Spontaneous
  Country: GB (occurrence: GB)
  Receive Date: 20160114
  Receipt Date: 20160114
  Transmission Date: 20160526
  Serious: Yes (Other)
  Sender: FDA-Public Use
  Company Number: GB-GILEAD-2016-0192316

PATIENT
  Age: 80 Year
  Sex: Male

DRUGS (2)
  1. NICORANDIL [Concomitant]
     Active Substance: NICORANDIL
  2. RANOLAZINE [Suspect]
     Active Substance: RANOLAZINE
     Indication: PRODUCT USED FOR UNKNOWN INDICATION
     Dosage: UNK
     Route: 065

REACTIONS (4)
  - Vasodilatation [Unknown]
  - Feeling abnormal [Unknown]
  - Left ventricular failure [Unknown]
  - Hypotonia [Unknown]
